FAERS Safety Report 6659787-X (Version None)
Quarter: 2010Q1

REPORT INFORMATION
  Report Type: 
  Country: None (occurrence: None)
  Receive Date: 20100325
  Receipt Date: 20100317
  Transmission Date: 20100710
  Serious: Yes (Hospitalization)
  Sender: FDA-Public Use
  Company Number: 539413

PATIENT
  Age: 15 Year
  Sex: Male

DRUGS (12)
  1. CYTARABINE [Suspect]
     Indication: B PRECURSOR TYPE ACUTE LEUKAEMIA
  2. METHOTREXATE [Suspect]
     Indication: B PRECURSOR TYPE ACUTE LEUKAEMIA
     Dosage: INTRATHECAL
     Route: 037
  3. VINCRISTINE SULFATE [Suspect]
     Indication: B PRECURSOR TYPE ACUTE LEUKAEMIA
  4. ELSPAR [Suspect]
     Indication: B PRECURSOR TYPE ACUTE LEUKAEMIA
  5. (THERAPEUTIC RADIOPHARMACEUTICALS) [Suspect]
     Indication: B PRECURSOR TYPE ACUTE LEUKAEMIA
  6. PREDNISOLONE [Concomitant]
  7. DAUNOMYCIN [Concomitant]
  8. CYCLOPHOSPHAMIDE [Concomitant]
  9. MERCAPTOPURINE [Concomitant]
  10. HYDROCORTISONE [Concomitant]
  11. ACYCLOVIR [Concomitant]
  12. DOXORUBICIN HCL [Concomitant]

REACTIONS (22)
  - AREFLEXIA [None]
  - AURA [None]
  - BONE MARROW DISORDER [None]
  - CEREBRAL DISORDER [None]
  - CEREBROSCLEROSIS [None]
  - COAGULOPATHY [None]
  - COMPLEX PARTIAL SEIZURES [None]
  - CONFUSIONAL STATE [None]
  - DIZZINESS [None]
  - ELECTROENCEPHALOGRAM ABNORMAL [None]
  - EYELID PTOSIS [None]
  - GLIOSIS [None]
  - HERPES ZOSTER [None]
  - HYPOMETABOLISM [None]
  - MENTAL IMPAIRMENT [None]
  - MUMPS [None]
  - NAUSEA [None]
  - NERVOUS SYSTEM DISORDER [None]
  - POSITRON EMISSION TOMOGRAM ABNORMAL [None]
  - TEMPORAL LOBE EPILEPSY [None]
  - THERAPEUTIC AGENT TOXICITY [None]
  - VERTIGO [None]
